FAERS Safety Report 8779953 (Version 1)
Quarter: 2012Q4

REPORT INFORMATION
  Report Type: 
  Country: US (occurrence: US)
  Receive Date: 20120912
  Receipt Date: 20120912
  Transmission Date: 20130627
  Serious: No
  Sender: FDA-Public Use
  Company Number: US-VERTEX PHARMACEUTICAL INC.-AE-2012-005608

PATIENT

DRUGS (13)
  1. INCIVEK [Suspect]
     Indication: HEPATITIS C
     Route: 048
     Dates: start: 20120229
  2. RIBAVIRIN [Concomitant]
     Indication: HEPATITIS C
     Route: 048
     Dates: start: 20120229
  3. PEGASYS [Concomitant]
     Indication: HEPATITIS C
     Route: 058
     Dates: start: 20120229
  4. LANTUS [Concomitant]
     Route: 058
  5. GLUCOPHAGE [Concomitant]
     Route: 048
  6. WELLBUTRIN [Concomitant]
     Route: 048
  7. HYDROXYZINE HCL [Concomitant]
     Indication: PRURITUS
     Route: 048
  8. CRESTOR [Concomitant]
     Route: 048
  9. LISINOPRIL [Concomitant]
     Route: 048
  10. MILK THISTLE [Concomitant]
     Route: 048
  11. VITAMINS/ MINERALS [Concomitant]
     Route: 048
  12. EFFEXOR XR [Concomitant]
     Route: 048
  13. PRENATAL MULTIVITAMIN-ULTRA [Concomitant]
     Route: 048

REACTIONS (4)
  - Pyrexia [Not Recovered/Not Resolved]
  - Oropharyngeal pain [Not Recovered/Not Resolved]
  - Cough [Not Recovered/Not Resolved]
  - Blood iron decreased [Not Recovered/Not Resolved]
